FAERS Safety Report 8427436-6 (Version None)
Quarter: 2012Q2

REPORT INFORMATION
  Report Type: 
  Country: None (occurrence: None)
  Receive Date: 20120611
  Receipt Date: 20120607
  Transmission Date: 20120825
  Serious: Yes (Hospitalization, Other)
  Sender: FDA-Public Use
  Company Number: PHHY2012JP041967

PATIENT

DRUGS (1)
  1. NEORAL [Suspect]
     Indication: PSORIASIS
     Route: 048

REACTIONS (2)
  - FRACTURE [None]
  - FALL [None]
